FAERS Safety Report 16307279 (Version 1)
Quarter: 2019Q2

REPORT INFORMATION
  Report Type: Spontaneous
  Country: US (occurrence: US)
  Receive Date: 20190514
  Receipt Date: 20190514
  Transmission Date: 20190711
  Serious: No
  Sender: FDA-Public Use
  Company Number: US-AMGEN INC.-USASP2019075223

PATIENT
  Age: 19 Year
  Sex: Female

DRUGS (2)
  1. AIMOVIG [Suspect]
     Active Substance: ERENUMAB-AOOE
     Dosage: 140 MILLIGRAM, QMO
     Route: 058
     Dates: start: 201903
  2. AIMOVIG [Suspect]
     Active Substance: ERENUMAB-AOOE
     Indication: MIGRAINE
     Dosage: 70 MILLIGRAM, QMO
     Route: 058
     Dates: start: 201901, end: 201902

REACTIONS (5)
  - Injection site discolouration [Recovering/Resolving]
  - Injection site swelling [Recovering/Resolving]
  - Injection site erythema [Recovered/Resolved]
  - Injection site pruritus [Recovering/Resolving]
  - Injection site papule [Recovering/Resolving]

NARRATIVE: CASE EVENT DATE: 201903
